FAERS Safety Report 16623997 (Version 2)
Quarter: 2019Q3

REPORT INFORMATION
  Report Type: Spontaneous
  Country: GB (occurrence: GB)
  Receive Date: 20190724
  Receipt Date: 20190904
  Transmission Date: 20191004
  Serious: Yes (Other)
  Sender: FDA-Public Use
  Company Number: GB-AUROBINDO-AUR-APL-2019-041383

PATIENT

DRUGS (1)
  1. MIRTAZAPINE FILM-COATED TABLETS 30MG [Suspect]
     Active Substance: MIRTAZAPINE
     Indication: CHRONIC FATIGUE SYNDROME
     Dosage: UNK
     Route: 065
     Dates: start: 20190531

REACTIONS (3)
  - Drug ineffective [Unknown]
  - Suicidal behaviour [Recovered/Resolved]
  - Aggression [Recovered/Resolved]
